FAERS Safety Report 5002683-4 (Version None)
Quarter: 2006Q2

REPORT INFORMATION
  Report Type: 
  Country: None (occurrence: None)
  Receive Date: 20060510
  Receipt Date: 20060427
  Transmission Date: 20061013
  Serious: Yes (Life-Threatening)
  Sender: FDA-Public Use
  Company Number: 2006047876

PATIENT
  Age: 69 Year
  Sex: Male
  Weight: 80 kg

DRUGS (6)
  1. VFEND [Suspect]
     Indication: ILL-DEFINED DISORDER
     Dosage: 400  MG (1 IN 1 D), ORAL
     Route: 048
     Dates: start: 20050528, end: 20050908
  2. CORDARONE [Suspect]
     Indication: ILL-DEFINED DISORDER
     Dosage: 1 GRAM (1 GRAM, 1 IN 1 WK), ORAL
     Route: 048
     Dates: end: 20050827
  3. NEXIUM [Suspect]
     Indication: ILL-DEFINED DISORDER
     Dosage: 40 MG (40 MG, EVERY DAY, ORAL
     Route: 048
  4. FUROSEMIDE [Concomitant]
  5. FLUOXETINE HCL [Concomitant]
  6. ALPRAZOLAM [Concomitant]

REACTIONS (8)
  - ATRIOVENTRICULAR BLOCK FIRST DEGREE [None]
  - DIARRHOEA [None]
  - DRUG INTERACTION [None]
  - ELECTROCARDIOGRAM PR PROLONGATION [None]
  - ELECTROCARDIOGRAM QT PROLONGED [None]
  - HYPOKALAEMIA [None]
  - HYPOMAGNESAEMIA [None]
  - TORSADE DE POINTES [None]
